FAERS Safety Report 6326800-9 (Version None)
Quarter: 2009Q3

REPORT INFORMATION
  Report Type: 
  Country: None (occurrence: None)
  Receive Date: 20090821
  Receipt Date: 20090806
  Transmission Date: 20100115
  Serious: Yes (Disabling)
  Sender: FDA-Public Use
  Company Number: 8050435

PATIENT
  Age: 60 Year
  Sex: Male
  Weight: 75 kg

DRUGS (6)
  1. KEPPRA [Suspect]
     Indication: CONVULSION
     Dosage: 1500 MG/D
     Dates: start: 20080601
  2. METOSUCCINAT [Concomitant]
  3. ASPIRIN [Concomitant]
  4. PANTOZOL [Concomitant]
  5. D [Concomitant]
  6. TARGIN [Concomitant]

REACTIONS (6)
  - BACK PAIN [None]
  - GAIT DISTURBANCE [None]
  - HYPOAESTHESIA [None]
  - MOBILITY DECREASED [None]
  - MUSCLE CONTRACTURE [None]
  - SPINAL DISORDER [None]
